FAERS Safety Report 12909871 (Version 1)
Quarter: 2016Q4

REPORT INFORMATION
  Report Type: Spontaneous
  Country: DE (occurrence: DE)
  Receive Date: 20161104
  Receipt Date: 20161104
  Transmission Date: 20170207
  Serious: Yes (Life-Threatening, Hospitalization)
  Sender: FDA-Public Use
  Company Number: DE-B.I. PHARMACEUTICALS,INC./RIDGEFIELD-2016-BI-072374

PATIENT
  Age: 58 Year
  Sex: Female

DRUGS (1)
  1. PRADAXA [Suspect]
     Active Substance: DABIGATRAN ETEXILATE MESYLATE
     Indication: EMBOLIC STROKE
     Route: 065

REACTIONS (5)
  - Cerebral artery embolism [Unknown]
  - Unevaluable event [Unknown]
  - Embolic cerebral infarction [Unknown]
  - Cerebellar haemorrhage [Unknown]
  - Vertebral artery stenosis [Unknown]
